FAERS Safety Report 6212029-1 (Version None)
Quarter: 2009Q2

REPORT INFORMATION
  Report Type: 
  Country: None (occurrence: None)
  Receive Date: 20090602
  Receipt Date: 20090519
  Transmission Date: 20091009
  Serious: Yes (Other)
  Sender: FDA-Public Use
  Company Number: GB-B.I. PHARMACEUTICALS,INC./RIDGEFIELD-2009-BP-04973YA

PATIENT
  Age: 77 Year
  Sex: Male

DRUGS (4)
  1. TAMSULOSIN HCL [Suspect]
  2. CYCLOPENTOLATE (CYCLOPENTOLATE HYDROCHLORIDE) [Concomitant]
     Indication: DRUG THERAPY
  3. KETOROLAC (KETOROLAC TROMETHAMINE) [Concomitant]
     Indication: DRUG THERAPY
  4. PHENYLEPHRINE (PHENYLEPHRINE HYDROCHLORIDE) [Concomitant]
     Indication: DRUG THERAPY

REACTIONS (1)
  - MIOSIS [None]
